FAERS Safety Report 7177689-X (Version None)
Quarter: 2010Q4

REPORT INFORMATION
  Report Type: 
  Country: None (occurrence: None)
  Receive Date: 20101220
  Receipt Date: 20101208
  Transmission Date: 20110411
  Serious: Yes (Other)
  Sender: FDA-Public Use
  Company Number: US-SANOFI-AVENTIS-2010SA067329

PATIENT
  Age: 60 Year
  Sex: Male
  Weight: 86.2 kg

DRUGS (16)
  1. PLAVIX [Suspect]
     Route: 065
     Dates: start: 19960101, end: 20100101
  2. WARFARIN SODIUM [Suspect]
  3. COUMADIN [Concomitant]
  4. ZETIA [Concomitant]
  5. LIPITOR [Concomitant]
  6. ENALAPRIL [Concomitant]
  7. CILOSTAZOL [Concomitant]
  8. LASIX [Concomitant]
  9. LOPRESSOR [Concomitant]
  10. SPIRONOLACTONE [Concomitant]
  11. SYNTHROID [Concomitant]
  12. DIGITEK [Concomitant]
  13. FLECAINIDE [Concomitant]
  14. TRICOR [Concomitant]
  15. LANTUS [Concomitant]
  16. HUMALOG [Concomitant]

REACTIONS (3)
  - CARDIAC DISORDER [None]
  - PRODUCT ODOUR ABNORMAL [None]
  - SKIN HAEMORRHAGE [None]
